FAERS Safety Report 6974486-2 (Version None)
Quarter: 2010Q3

REPORT INFORMATION
  Report Type: 
  Country: None (occurrence: None)
  Receive Date: 20100909
  Receipt Date: 20080718
  Transmission Date: 20110219
  Serious: No
  Sender: FDA-Public Use
  Company Number: US-WYE-H05195408

PATIENT
  Sex: Male
  Weight: 68.1 kg

DRUGS (3)
  1. PROTONIX [Suspect]
     Indication: GASTROOESOPHAGEAL REFLUX DISEASE
     Route: 048
     Dates: start: 20080710
  2. METOCLOPRAMIDE [Concomitant]
  3. LOVASTATIN [Concomitant]

REACTIONS (1)
  - FAECES DISCOLOURED [None]
